FAERS Safety Report 18943578 (Version 1)
Quarter: 2021Q1

REPORT INFORMATION
  Report Type: Spontaneous
  Country: JP (occurrence: JP)
  Receive Date: 20210226
  Receipt Date: 20210226
  Transmission Date: 20210420
  Serious: Yes (Death)
  Sender: FDA-Public Use
  Company Number: JP-JNJFOC-20201002882

PATIENT

DRUGS (1)
  1. DARZALEX [Suspect]
     Active Substance: DARATUMUMAB
     Indication: PLASMABLASTIC LYMPHOMA
     Dosage: DOSE UNKNOWN
     Route: 041

REACTIONS (3)
  - Lymphoma [Fatal]
  - Product use in unapproved indication [Unknown]
  - Off label use [Unknown]
